FAERS Safety Report 4490051-3 (Version None)
Quarter: 2004Q4

REPORT INFORMATION
  Report Type: 
  Country: None (occurrence: None)
  Receive Date: 20041101
  Receipt Date: 20040922
  Transmission Date: 20050328
  Serious: Yes (Hospitalization)
  Sender: FDA-Public Use
  Company Number: PHNU2004DE03295

PATIENT
  Sex: Male
  Weight: 107 kg

DRUGS (1)
  1. SANDIMMUNE [Suspect]
     Indication: HEART TRANSPLANT
     Dosage: 200MG/DAY
     Route: 048
     Dates: start: 19960101

REACTIONS (7)
  - ABNORMAL BEHAVIOUR [None]
  - COGNITIVE DISORDER [None]
  - DELUSION [None]
  - DISORIENTATION [None]
  - HALLUCINATION [None]
  - MOOD SWINGS [None]
  - SCHIZOAFFECTIVE DISORDER [None]
